FAERS Safety Report 6331690-4 (Version None)
Quarter: 2009Q3

REPORT INFORMATION
  Report Type: 
  Country: None (occurrence: None)
  Receive Date: 20090827
  Receipt Date: 20090819
  Transmission Date: 20100115
  Serious: Yes (Death)
  Sender: FDA-Public Use
  Company Number: US-ROCHE-651817

PATIENT
  Sex: Male

DRUGS (1)
  1. XELODA [Suspect]
     Indication: COLON CANCER
     Dosage: DOSE: 1500 MG IN MORNING, 2000 MG IN EVENING, 14 DAYS ON, 7 DAYS OFF
     Route: 048
     Dates: start: 20090501

REACTIONS (1)
  - DEATH [None]
